FAERS Safety Report 17526481 (Version 1)
Quarter: 2020Q1

REPORT INFORMATION
  Report Type: Spontaneous
  Country: US (occurrence: US)
  Receive Date: 20200311
  Receipt Date: 20200311
  Transmission Date: 20200409
  Serious: Yes (Other)
  Sender: FDA-Public Use
  Company Number: US-PFIZER INC-2020102914

PATIENT
  Age: 50 Year

DRUGS (2)
  1. ADVIL PM [Suspect]
     Active Substance: DIPHENHYDRAMINE CITRATE\IBUPROFEN
     Dosage: UNK
  2. ADVIL [Suspect]
     Active Substance: IBUPROFEN

REACTIONS (6)
  - Condition aggravated [Unknown]
  - Insomnia [Unknown]
  - Abdominal pain upper [Unknown]
  - Ileus [Unknown]
  - Feeling abnormal [Unknown]
  - Eating disorder [Unknown]
